FAERS Safety Report 7506412-1 (Version None)
Quarter: 2011Q2

REPORT INFORMATION
  Report Type: 
  Country: None (occurrence: None)
  Receive Date: 20110526
  Receipt Date: 20110519
  Transmission Date: 20111010
  Serious: Yes (Hospitalization)
  Sender: FDA-Public Use
  Company Number: US-VIROPHARMA INCORPORATED-20110509CINRY2000

PATIENT
  Sex: Female
  Weight: 71.732 kg

DRUGS (9)
  1. TRAMADOL HCL [Concomitant]
     Indication: PAIN
  2. VITAMIN D [Concomitant]
     Indication: PRODUCT USED FOR UNKNOWN INDICATION
  3. VITAMIN E [Concomitant]
     Indication: PRODUCT USED FOR UNKNOWN INDICATION
  4. FISH OIL [Concomitant]
     Indication: PRODUCT USED FOR UNKNOWN INDICATION
     Dosage: UNKNOWN
     Route: 048
  5. OCU-GLIDE [Concomitant]
     Indication: PRODUCT USED FOR UNKNOWN INDICATION
     Dosage: UNKNOWN
  6. CINRYZE [Suspect]
     Indication: HEREDITARY ANGIOEDEMA
     Dates: start: 20100901
  7. CYMBALTA [Concomitant]
     Indication: DEPRESSION
     Route: 048
  8. LYRICA [Concomitant]
     Indication: FIBROMYALGIA
  9. LORTAB [Concomitant]
     Indication: PAIN
     Route: 048

REACTIONS (6)
  - SYNCOPE [None]
  - BLOOD PRESSURE INCREASED [None]
  - PALPITATIONS [None]
  - ARTHRALGIA [None]
  - HEREDITARY ANGIOEDEMA [None]
  - CHEST PAIN [None]
